FAERS Safety Report 24301670 (Version 2)
Quarter: 2024Q4

REPORT INFORMATION
  Report Type: Spontaneous
  Country: JP (occurrence: JP)
  Receive Date: 20240910
  Receipt Date: 20241001
  Transmission Date: 20250115
  Serious: Yes (Other)
  Sender: ASTELLAS
  Company Number: JP-ASTELLAS-2024-AER-003128

PATIENT
  Age: 77 Year
  Sex: Male

DRUGS (2)
  1. MIRABEGRON [Suspect]
     Active Substance: MIRABEGRON
     Indication: Hypertonic bladder
     Route: 048
  2. TAMBOCOR [Suspect]
     Active Substance: FLECAINIDE ACETATE
     Indication: Product used for unknown indication
     Route: 065

REACTIONS (4)
  - Arrhythmia [Not Recovered/Not Resolved]
  - Urinary retention [Unknown]
  - Tachycardia [Unknown]
  - Contraindicated product administered [Unknown]
